FAERS Safety Report 12858488 (Version 1)
Quarter: 2016Q4

REPORT INFORMATION
  Report Type: Spontaneous
  Country: US (occurrence: US)
  Receive Date: 20161018
  Receipt Date: 20161018
  Transmission Date: 20170207
  Serious: No
  Sender: FDA-Public Use
  Company Number: US-BAYER-2016-199884

PATIENT
  Age: 96 Year
  Sex: Male
  Weight: 74.83 kg

DRUGS (4)
  1. MIRALAX [Suspect]
     Active Substance: POLYETHYLENE GLYCOL 3350
     Indication: CONSTIPATION PROPHYLAXIS
     Dosage: 1 DF, QD
     Route: 048
  2. MIRALAX [Suspect]
     Active Substance: POLYETHYLENE GLYCOL 3350
     Indication: GASTROINTESTINAL DISORDER
  3. SUFENTANIL NARCO-MED [Concomitant]
     Dosage: UNK
  4. LYRICA [Concomitant]
     Active Substance: PREGABALIN

REACTIONS (1)
  - Product use issue [None]
